FAERS Safety Report 23508508 (Version 1)
Quarter: 2024Q1

REPORT INFORMATION
  Report Type: Spontaneous
  Country: NL (occurrence: None)
  Receive Date: 20240209
  Receipt Date: 20240209
  Transmission Date: 20240409
  Serious: Yes (Death)
  Sender: FDA-Public Use
  Company Number: 2024A032155

PATIENT
  Age: 21 Year
  Sex: Male
  Weight: 78 kg

DRUGS (3)
  1. QUETIAPINE [Suspect]
     Active Substance: QUETIAPINE
     Indication: Sleep disorder
     Dosage: 1XPER DAG
     Route: 048
     Dates: start: 20230530
  2. QUETIAPINE [Suspect]
     Active Substance: QUETIAPINE
     Indication: Restlessness
     Dosage: 1XPER DAG
     Route: 048
     Dates: start: 20230530
  3. FLUOXETINE [Suspect]
     Active Substance: FLUOXETINE HYDROCHLORIDE
     Indication: Depressed mood
     Dosage: 1X PER DAG
     Dates: start: 20230613

REACTIONS (5)
  - Completed suicide [Fatal]
  - Mania [Fatal]
  - Condition aggravated [Fatal]
  - Mood swings [Fatal]
  - Hypomania [Fatal]

NARRATIVE: CASE EVENT DATE: 20230827
